FAERS Safety Report 8913318 (Version 2)
Quarter: 2012Q4

REPORT INFORMATION
  Report Type: 
  Country: US (occurrence: US)
  Receive Date: 20121116
  Receipt Date: 20121120
  Transmission Date: 20130627
  Serious: Yes (Life-Threatening, Hospitalization, Other)
  Sender: FDA-Public Use
  Company Number: US-ABBOTT-12P-163-1006678-00

PATIENT

DRUGS (3)
  1. HUMIRA [Suspect]
     Indication: CROHN^S DISEASE
  2. METHOTREXATE [Suspect]
     Indication: PRODUCT USED FOR UNKNOWN INDICATION
  3. REMICADE [Suspect]
     Indication: CROHN^S DISEASE

REACTIONS (36)
  - Pharyngeal oedema [Unknown]
  - Intestinal obstruction [Unknown]
  - Influenza like illness [Unknown]
  - Pyrexia [Unknown]
  - Myalgia [Unknown]
  - Night sweats [Unknown]
  - Chills [Unknown]
  - Nausea [Unknown]
  - Vomiting [Unknown]
  - Mouth ulceration [Recovering/Resolving]
  - Pharyngeal ulceration [Recovering/Resolving]
  - Fluid intake reduced [Unknown]
  - Lip pain [Recovering/Resolving]
  - Intestinal obstruction [Unknown]
  - Intestinal obstruction [Unknown]
  - Intestinal obstruction [Unknown]
  - Intestinal obstruction [Unknown]
  - Intestinal obstruction [Unknown]
  - Intestinal obstruction [Unknown]
  - Swelling face [Unknown]
  - Dyspnoea [Unknown]
  - Crohn^s disease [Unknown]
  - Aphthous stomatitis [Unknown]
  - Pain [Unknown]
  - Haemorrhage [Unknown]
  - Drug ineffective [Unknown]
  - Gastrointestinal ulcer [Unknown]
  - Small intestine ulcer [Unknown]
  - Diarrhoea [Unknown]
  - Incontinence [Unknown]
  - Nausea [Unknown]
  - Vomiting [Unknown]
  - Dehydration [Unknown]
  - Pain [Unknown]
  - Arthralgia [Unknown]
  - Pyrexia [Unknown]
